FAERS Safety Report 4310567-X (Version None)
Quarter: 2004Q1

REPORT INFORMATION
  Report Type: 
  Country: None (occurrence: None)
  Receive Date: 20040303
  Receipt Date: 20040223
  Transmission Date: 20041129
  Serious: Yes (Death, Hospitalization)
  Sender: FDA-Public Use
  Company Number: FR-GLAXOSMITHKLINE-B0324442A

PATIENT
  Age: 82 Year
  Sex: Female

DRUGS (10)
  1. AUGMENTIN [Suspect]
     Route: 065
     Dates: start: 20031223, end: 20040105
  2. DEPAKENE [Suspect]
     Indication: EPILEPSY
     Route: 065
     Dates: start: 20031230, end: 20040131
  3. FUNGIZONE [Suspect]
     Route: 065
     Dates: start: 20040111, end: 20040112
  4. RIVOTRIL [Suspect]
     Indication: EPILEPSY
     Dosage: 2G PER DAY
     Route: 042
  5. URBANYL [Suspect]
     Route: 048
     Dates: start: 20031230, end: 20040108
  6. NOROXIN [Concomitant]
     Route: 048
     Dates: start: 20031228, end: 20031229
  7. OFLOCET [Concomitant]
     Route: 065
     Dates: start: 20031229, end: 20040105
  8. ALDALIX [Concomitant]
     Route: 048
  9. LIPANTHYL 200 [Concomitant]
     Route: 048
  10. VASTAREL 20 [Concomitant]
     Route: 048

REACTIONS (10)
  - AMMONIA INCREASED [None]
  - C-REACTIVE PROTEIN INCREASED [None]
  - CARDIAC ARREST [None]
  - CONFUSIONAL STATE [None]
  - DISTURBANCE IN ATTENTION [None]
  - EPILEPSY [None]
  - METABOLIC ENCEPHALOPATHY [None]
  - OXYGEN SATURATION DECREASED [None]
  - SOMNOLENCE [None]
  - VOMITING [None]
